FAERS Safety Report 25044570 (Version 1)
Quarter: 2025Q1

REPORT INFORMATION
  Report Type: Spontaneous
  Country: NO (occurrence: NO)
  Receive Date: 20250306
  Receipt Date: 20250306
  Transmission Date: 20250408
  Serious: Yes (Other)
  Sender: AMGEN
  Company Number: NO-AMGEN-NORSP2025032904

PATIENT

DRUGS (1)
  1. ARANESP [Suspect]
     Active Substance: DARBEPOETIN ALFA
     Indication: Product used for unknown indication
     Dosage: UNK UNK, QWK
     Route: 065

REACTIONS (2)
  - Intestinal perforation [Recovered/Resolved]
  - Intestinal haemorrhage [Unknown]
